FAERS Safety Report 9292891 (Version 1)
Quarter: 2013Q2

REPORT INFORMATION
  Report Type: Spontaneous
  Country: US (occurrence: US)
  Receive Date: 20130516
  Receipt Date: 20130516
  Transmission Date: 20140414
  Serious: Yes (Other)
  Sender: FDA-Public Use
  Company Number: US-JNJFOC-20130503883

PATIENT
  Sex: 0

DRUGS (1)
  1. DOXORUBICIN HYDROCHLORIDE(DOXIL) [Suspect]
     Indication: KAPOSI^S SARCOMA
     Route: 042

REACTIONS (1)
  - Liver function test abnormal [Unknown]
